FAERS Safety Report 24206911 (Version 4)
Quarter: 2024Q3

REPORT INFORMATION
  Report Type: Spontaneous
  Country: US (occurrence: US)
  Receive Date: 20240813
  Receipt Date: 20240918
  Transmission Date: 20241017
  Serious: Yes (Other)
  Sender: INCYTE
  Company Number: US-INCYTE CORPORATION-2024IN008025

PATIENT

DRUGS (3)
  1. JAKAFI [Suspect]
     Active Substance: RUXOLITINIB
     Indication: Lichen planus
     Dosage: 5 MILLIGRAM, BID
     Route: 048
     Dates: start: 20240724
  2. JAKAFI [Suspect]
     Active Substance: RUXOLITINIB
     Indication: Myeloproliferative neoplasm
     Dosage: 5 MILLIGRAM, BID
     Route: 048
     Dates: start: 20240101, end: 20240803
  3. JAKAFI [Suspect]
     Active Substance: RUXOLITINIB
     Indication: Neurodermatitis
     Dosage: 10 MILLIGRAM, BID
     Route: 048
     Dates: start: 20240830

REACTIONS (4)
  - Myeloproliferative neoplasm [Unknown]
  - Condition aggravated [Unknown]
  - Product availability issue [Unknown]
  - Off label use [Unknown]

NARRATIVE: CASE EVENT DATE: 20240101
